FAERS Safety Report 4539580-4 (Version None)
Quarter: 2004Q4

REPORT INFORMATION
  Report Type: 
  Country: None (occurrence: None)
  Receive Date: 20041228
  Receipt Date: 20041217
  Transmission Date: 20050328
  Serious: Yes (Hospitalization)
  Sender: FDA-Public Use
  Company Number: FR-ABBOTT-04P-056-0284283-00

PATIENT
  Age: 65 Year
  Sex: Male

DRUGS (6)
  1. VERCYTE [Suspect]
     Indication: SPLENOMEGALY
     Route: 048
     Dates: start: 20041105
  2. VERCYTE [Suspect]
     Route: 048
     Dates: start: 20030101, end: 20041105
  3. GLICLAZIDE [Suspect]
     Indication: DRUG USE FOR UNKNOWN INDICATION
     Route: 048
     Dates: start: 20040101
  4. ACETYLSALICYLATE LYSINE [Concomitant]
     Indication: DRUG USE FOR UNKNOWN INDICATION
     Route: 048
  5. ENDOTELON [Concomitant]
     Indication: DRUG USE FOR UNKNOWN INDICATION
     Route: 048
  6. PHENOXYMETHYL PENICILLIN [Concomitant]
     Indication: DRUG USE FOR UNKNOWN INDICATION
     Route: 048

REACTIONS (2)
  - PYREXIA [None]
  - RASH [None]
